FAERS Safety Report 9799342 (Version 1)
Quarter: 2013Q4

REPORT INFORMATION
  Report Type: Spontaneous
  Country: DE (occurrence: None)
  Receive Date: 20131231
  Receipt Date: 20131231
  Transmission Date: 20140711
  Serious: Yes (Life-Threatening)
  Sender: FDA-Public Use
  Company Number: FK201305572

PATIENT
  Age: 65 Year
  Sex: Female

DRUGS (3)
  1. CARBOPLATIN (MANUFACTURER UNKNOWN) (CARBOPLATIN) (CARBOPLATIN) [Suspect]
     Indication: PRODUCT USED FOR UNKNOWN INDICATION
  2. CORTISON (CORTISONE ACETATE) [Concomitant]
  3. ACETYLCYSTEIN (ACETYLCYSTEINE) [Concomitant]

REACTIONS (1)
  - Acute hepatic failure [None]
